FAERS Safety Report 7324221-3 (Version None)
Quarter: 2011Q1

REPORT INFORMATION
  Report Type: 
  Country: None (occurrence: None)
  Receive Date: 20110301
  Receipt Date: 20110225
  Transmission Date: 20110831
  Serious: Yes (Death, Life-Threatening)
  Sender: FDA-Public Use
  Company Number: JP-ABBOTT-10P-087-0692471-00

PATIENT
  Sex: Male
  Weight: 68.7 kg

DRUGS (6)
  1. REMIFENTANIL HYDROCHLORIDE [Suspect]
     Indication: MAINTENANCE OF ANAESTHESIA
     Dosage: 0.1 -0.5 MICRO GRAM/KG/MIN
     Route: 042
     Dates: start: 20090728, end: 20090728
  2. ROCURONIUM BROMIDE [Suspect]
     Indication: MAINTENANCE OF ANAESTHESIA
     Dosage: 45 MG
     Route: 042
     Dates: start: 20090728, end: 20090728
  3. PROPOFOL [Suspect]
     Indication: MAINTENANCE OF ANAESTHESIA
     Dosage: 1-3MG/DAY
     Route: 042
     Dates: start: 20090728, end: 20090728
  4. REMIFENTANIL HYDROCHLORIDE [Suspect]
     Dosage: 600 MCG
     Route: 042
     Dates: start: 20090728, end: 20090728
  5. SEVOFLURANE [Suspect]
     Indication: MAINTENANCE OF ANAESTHESIA
     Dosage: 8 % FOR ABOUT 30 SECONDS
     Route: 055
     Dates: start: 20090728, end: 20090728
  6. MEPIVACAINE HCL [Suspect]
     Indication: MAINTENANCE OF ANAESTHESIA
     Dosage: 240 MG BOLUS, 75 MG/HR CONTINUOUS DRIP
     Route: 008
     Dates: start: 20090728, end: 20090728

REACTIONS (2)
  - BILE DUCT CANCER [None]
  - HYPERTHERMIA MALIGNANT [None]
